FAERS Safety Report 14071137 (Version 1)
Quarter: 2017Q4

REPORT INFORMATION
  Report Type: Spontaneous
  Country: US (occurrence: US)
  Receive Date: 20171010
  Receipt Date: 20171010
  Transmission Date: 20180321
  Serious: No
  Sender: FDA-Public Use
  Company Number: US-JNJFOC-20170801994

PATIENT
  Age: 74 Year
  Sex: Female

DRUGS (4)
  1. MULTIVITAMINS [Concomitant]
     Active Substance: VITAMINS
  2. IMBRUVICA [Suspect]
     Active Substance: IBRUTINIB
     Indication: PRODUCT USED FOR UNKNOWN INDICATION
     Route: 048
     Dates: start: 20170601
  3. CALCIUM CARBONATE W/COLECALCIFEROL [Concomitant]
     Active Substance: CALCIUM CARBONATE\CHOLECALCIFEROL
  4. MULTIVITAMINS [Concomitant]
     Active Substance: VITAMINS

REACTIONS (3)
  - Kidney infection [Unknown]
  - Nausea [Unknown]
  - Rash [Unknown]

NARRATIVE: CASE EVENT DATE: 201708
